FAERS Safety Report 4782521-5 (Version None)
Quarter: 2005Q3

REPORT INFORMATION
  Report Type: 
  Country: None (occurrence: None)
  Receive Date: 20050929
  Receipt Date: 20050209
  Transmission Date: 20060218
  Serious: No
  Sender: FDA-Public Use
  Company Number: 400447

PATIENT
  Age: 79 Year
  Sex: Male
  Weight: 76.4 kg

DRUGS (12)
  1. COREG [Suspect]
     Indication: CARDIAC FAILURE
     Dosage: 3.125MG TWICE PER DAY
     Route: 048
     Dates: start: 20041110, end: 20050208
  2. ENALAPRIL [Concomitant]
     Indication: CARDIAC FAILURE
     Dosage: 5MG TWICE PER DAY
     Route: 065
     Dates: start: 20040202
  3. ZOCOR [Concomitant]
     Indication: CORONARY ARTERY DISEASE
     Dosage: 20MG AT NIGHT
     Route: 065
     Dates: start: 20031201
  4. AMIODARONE [Concomitant]
     Indication: ATRIAL FIBRILLATION
     Dosage: 200MG UNKNOWN
     Route: 065
     Dates: start: 20031101
  5. COLACE [Concomitant]
     Indication: CONSTIPATION
     Dosage: 100MG TWICE PER DAY
     Route: 065
     Dates: start: 20031201
  6. MULTIVITAMIN [Concomitant]
     Dosage: 1U PER DAY
     Route: 065
  7. CALCIUM + VIT D [Concomitant]
     Dosage: 600MG PER DAY
     Route: 065
     Dates: start: 20041101
  8. ASPIRIN [Concomitant]
     Indication: CORONARY ARTERY DISEASE
     Dosage: 81MG PER DAY
     Route: 065
     Dates: start: 20031201
  9. IRON [Concomitant]
     Dosage: 150MG TWICE PER DAY
     Route: 065
     Dates: start: 20040421
  10. GLUCOPHAGE [Concomitant]
  11. NSAIDS [Concomitant]
  12. METFORMIN [Concomitant]

REACTIONS (2)
  - ABNORMAL DREAMS [None]
  - NIGHTMARE [None]
